FAERS Safety Report 15862751 (Version 1)
Quarter: 2019Q1

REPORT INFORMATION
  Report Type: Spontaneous
  Country: JP (occurrence: JP)
  Receive Date: 20190124
  Receipt Date: 20190124
  Transmission Date: 20190417
  Serious: Yes (Other)
  Sender: FDA-Public Use
  Company Number: JP-MYLANLABS-2019M1006666

PATIENT
  Age: 3 Year
  Sex: Male

DRUGS (4)
  1. PROPRANOLOL [Suspect]
     Active Substance: PROPRANOLOL HYDROCHLORIDE
     Indication: INFANTILE HAEMANGIOMA
     Dosage: INITIAL DOSE (0.5 MG/KG/DAY)
     Route: 048
  2. PROPRANOLOL [Suspect]
     Active Substance: PROPRANOLOL HYDROCHLORIDE
     Dosage: AGAIN ADMINISTERED TWICE AT THE AGE OF 5 YEARS AND 5 YEARS AND 10 MONTHS (10-15MG; 0.5-0.65MG/KG/...
     Route: 048
  3. PROPRANOLOL [Suspect]
     Active Substance: PROPRANOLOL HYDROCHLORIDE
     Dosage: AT 9 MONTHS OF TREATMENT INITIATION; DOSE MAINTAINED (AT 3 MG/KG/DAY UNTIL RESOLUTION OF URETHRAL...
     Route: 048
  4. PROPRANOLOL [Suspect]
     Active Substance: PROPRANOLOL HYDROCHLORIDE
     Dosage: SIX MONTHS FOLLOWING TREATMENT INITIATION, URINARY RETENTION OCCURRED AT THIS DOSE (1.6 MG/KG/DAY)
     Route: 048

REACTIONS (1)
  - Urinary retention [Recovered/Resolved]
